FAERS Safety Report 6607689-7 (Version None)
Quarter: 2010Q1

REPORT INFORMATION
  Report Type: 
  Country: None (occurrence: None)
  Receive Date: 20100301
  Receipt Date: 20100217
  Transmission Date: 20100710
  Serious: Yes (Other)
  Sender: FDA-Public Use
  Company Number: ES-ELI_LILLY_AND_COMPANY-ES201002004856

PATIENT
  Age: 55 Year
  Sex: Female

DRUGS (3)
  1. CYMBALTA [Suspect]
     Indication: DEPRESSION
     Dosage: 30 MG, 2/D
     Route: 048
     Dates: start: 20090201, end: 20091101
  2. COZAAR [Concomitant]
     Indication: HYPERTENSION
     Dosage: UNK, UNKNOWN
     Route: 048
     Dates: start: 20071101
  3. TRAMADOL HYDROCHLORIDE AND ACETAMINOPHEN [Concomitant]
     Indication: SPINAL OSTEOARTHRITIS
     Dosage: 37.5MG/325MG, UNKNOWN
     Route: 048
     Dates: start: 20071101

REACTIONS (2)
  - GOITRE [None]
  - HYPOTHERMIA [None]
